FAERS Safety Report 4659923-0 (Version None)
Quarter: 2005Q2

REPORT INFORMATION
  Report Type: 
  Country: None (occurrence: None)
  Receive Date: 20050512
  Receipt Date: 20050509
  Transmission Date: 20051028
  Serious: Yes (Hospitalization)
  Sender: FDA-Public Use
  Company Number: PHNU2005DE01916

PATIENT
  Age: 67 Year
  Sex: Female

DRUGS (1)
  1. VOLTAREN [Suspect]
     Indication: BACK PAIN
     Dates: start: 20050401

REACTIONS (5)
  - AGITATION [None]
  - ANXIETY [None]
  - BREAST PAIN [None]
  - HEADACHE [None]
  - LOSS OF CONSCIOUSNESS [None]
